FAERS Safety Report 10275116 (Version 2)
Quarter: 2014Q3

REPORT INFORMATION
  Report Type: Spontaneous
  Country: MX (occurrence: MX)
  Receive Date: 20140703
  Receipt Date: 20140808
  Transmission Date: 20150326
  Serious: Yes (Death, Hospitalization, Other)
  Sender: FDA-Public Use
  Company Number: MX-ROCHE-1427479

PATIENT
  Age: 53 Year
  Sex: Male

DRUGS (1)
  1. ALTEPLASE [Suspect]
     Active Substance: ALTEPLASE
     Indication: ISCHAEMIC STROKE
     Route: 065

REACTIONS (6)
  - Haemorrhagic cerebral infarction [Unknown]
  - Pneumonia aspiration [Unknown]
  - Guillain-Barre syndrome [Unknown]
  - Multi-organ failure [Fatal]
  - Sepsis [Unknown]
  - Haemorrhagic transformation stroke [Unknown]
